FAERS Safety Report 18244404 (Version 2)
Quarter: 2020Q3

REPORT INFORMATION
  Report Type: Spontaneous
  Country: US (occurrence: US)
  Receive Date: 20200908
  Receipt Date: 20200928
  Transmission Date: 20201103
  Serious: No
  Sender: FDA-Public Use
  Company Number: US-CELGENEUS-USA-20200901226

PATIENT
  Sex: Male
  Weight: 72.19 kg

DRUGS (2)
  1. REVLIMID [Suspect]
     Active Substance: LENALIDOMIDE
     Indication: PLASMA CELL MYELOMA
     Dosage: 25 MILLIGRAM
     Route: 048
     Dates: start: 202008
  2. REVLIMID [Suspect]
     Active Substance: LENALIDOMIDE
     Dosage: 10 MILLIGRAM (DOSE REDUCED)
     Route: 048
     Dates: start: 2020

REACTIONS (3)
  - Back pain [Unknown]
  - Diarrhoea [Unknown]
  - Renal disorder [Unknown]

NARRATIVE: CASE EVENT DATE: 2020
